FAERS Safety Report 9886180 (Version 3)
Quarter: 2014Q2

REPORT INFORMATION
  Report Type: Spontaneous
  Country: GB (occurrence: GB)
  Receive Date: 20140210
  Receipt Date: 20140415
  Transmission Date: 20141212
  Serious: Yes (Hospitalization, Disabling)
  Sender: FDA-Public Use
  Company Number: GB-BAXTER-2014BAX005016

PATIENT
  Age: 60 Year
  Sex: Female
  Weight: 78.46 kg

DRUGS (8)
  1. CYCLOPHOSPHAMIDE INJECTION 1G [Suspect]
     Indication: BREAST CANCER
     Route: 051
     Dates: start: 200006, end: 200010
  2. EPIRUBICIN [Suspect]
     Indication: BREAST CANCER
     Route: 051
     Dates: start: 200006, end: 200010
  3. FLUOROURACIL [Suspect]
     Indication: BREAST CANCER
     Route: 051
     Dates: start: 200006, end: 200010
  4. ADCAL [Concomitant]
     Indication: BONE DISORDER
     Route: 065
  5. FORSTEO [Concomitant]
     Indication: BONE DISORDER
  6. KETAMINE [Concomitant]
     Indication: PRODUCT USED FOR UNKNOWN INDICATION
     Route: 065
  7. OXYCONTIN [Concomitant]
     Indication: PRODUCT USED FOR UNKNOWN INDICATION
     Route: 065
  8. OXYCONTIN [Concomitant]
     Route: 065

REACTIONS (2)
  - Spinal fracture [Not Recovered/Not Resolved]
  - Osteopenia [Unknown]
